FAERS Safety Report 4612107-4 (Version None)
Quarter: 2005Q2

REPORT INFORMATION
  Report Type: 
  Country: None (occurrence: None)
  Receive Date: 20050308
  Receipt Date: 20041129
  Transmission Date: 20051028
  Serious: Yes (Other)
  Sender: FDA-Public Use
  Company Number: 2004UW24391

PATIENT
  Age: 70 Year
  Sex: Female
  Weight: 127 kg

DRUGS (4)
  1. CRESTOR [Suspect]
     Indication: BLOOD CHOLESTEROL INCREASED
     Dosage: 10 MG PO
     Route: 048
     Dates: start: 20040101, end: 20040101
  2. HYZAAR [Concomitant]
  3. LOPRESSOR [Concomitant]
  4. MULTI-VITAMIN [Concomitant]

REACTIONS (2)
  - CHAPPED LIPS [None]
  - DRY MOUTH [None]
